FAERS Safety Report 6790989-8 (Version None)
Quarter: 2010Q2

REPORT INFORMATION
  Report Type: 
  Country: None (occurrence: None)
  Receive Date: 20100623
  Receipt Date: 20100623
  Transmission Date: 20101027
  Serious: No
  Sender: FDA-Public Use
  Company Number: None

PATIENT
  Sex: Male

DRUGS (2)
  1. FENTANYL [Suspect]
     Dosage: 2500 MCG
  2. RISPERIDONE [Suspect]
     Dosage: 37.5 MG

REACTIONS (2)
  - BRADYCARDIA [None]
  - TORSADE DE POINTES [None]
